FAERS Safety Report 8141202-0 (Version None)
Quarter: 2012Q1

REPORT INFORMATION
  Report Type: 
  Country: None (occurrence: None)
  Receive Date: 20120216
  Receipt Date: 20120213
  Transmission Date: 20120608
  Serious: Yes (Life-Threatening, Hospitalization)
  Sender: FDA-Public Use
  Company Number: US-B.I. PHARMACEUTICALS,INC./RIDGEFIELD-2012-BP-02773BP

PATIENT
  Sex: Female

DRUGS (1)
  1. PRADAXA [Suspect]
     Dates: start: 20110501

REACTIONS (9)
  - PLATELET COUNT DECREASED [None]
  - MALAISE [None]
  - CARDIO-RESPIRATORY ARREST [None]
  - EPISTAXIS [None]
  - WEIGHT DECREASED [None]
  - ASTHENIA [None]
  - FATIGUE [None]
  - PALLOR [None]
  - DIARRHOEA [None]
